FAERS Safety Report 8762611 (Version 2)
Quarter: 2012Q4

REPORT INFORMATION
  Report Type: 
  Country: BE (occurrence: BE)
  Receive Date: 20120830
  Receipt Date: 20120905
  Transmission Date: 20130627
  Serious: Yes (Death)
  Sender: FDA-Public Use
  Company Number: BE-GILEAD-2012-0059635

PATIENT
  Age: 34 Year
  Sex: Male

DRUGS (6)
  1. VISTIDE [Suspect]
     Indication: ANTIVIRAL TREATMENT
     Dosage: 350 mg, UNK
     Dates: start: 20120731
  2. MEDROL                             /00049601/ [Concomitant]
     Dosage: 32 mg, UNK
     Dates: start: 20120722, end: 20120727
  3. MEDROL                             /00049601/ [Concomitant]
     Dosage: 24 mg, UNK
     Dates: start: 20120728, end: 20120731
  4. MEDROL                             /00049601/ [Concomitant]
     Dosage: 16 mg, UNK
     Dates: start: 20120801
  5. ZOVIRAX                            /00587301/ [Concomitant]
     Dosage: UNK
     Dates: start: 20120724, end: 20120731
  6. XANAX [Concomitant]

REACTIONS (1)
  - Progressive multifocal leukoencephalopathy [Fatal]
